FAERS Safety Report 12916582 (Version 1)
Quarter: 2016Q4

REPORT INFORMATION
  Report Type: Spontaneous
  Country: US (occurrence: US)
  Receive Date: 20161107
  Receipt Date: 20161107
  Transmission Date: 20170207
  Serious: No
  Sender: FDA-Public Use
  Company Number: US-JAZZ-2016-US-016332

PATIENT
  Sex: Female

DRUGS (15)
  1. MULTIVITAMINS WITH IRON [Concomitant]
     Active Substance: IRON\VITAMINS
  2. RISPERIDONE. [Concomitant]
     Active Substance: RISPERIDONE
  3. XYREM [Suspect]
     Active Substance: SODIUM OXYBATE
     Dosage: 4.5 G, BID
     Route: 048
     Dates: start: 200512
  4. ALPRAZOLAM. [Concomitant]
     Active Substance: ALPRAZOLAM
  5. LORTAB [Concomitant]
     Active Substance: ACETAMINOPHEN\HYDROCODONE BITARTRATE
  6. HYDROCODONE [Concomitant]
     Active Substance: HYDROCODONE
  7. XYREM [Suspect]
     Active Substance: SODIUM OXYBATE
     Indication: NARCOLEPSY
     Dosage: 2.5 G, BID
     Route: 048
     Dates: start: 200511, end: 200512
  8. TYLENOL WITH CODEINE [Concomitant]
     Active Substance: ACETAMINOPHEN\CODEINE PHOSPHATE
  9. SERTRALINE HCL [Concomitant]
     Active Substance: SERTRALINE HYDROCHLORIDE
  10. BUSPIRONE HCL [Concomitant]
     Active Substance: BUSPIRONE HYDROCHLORIDE
  11. QUDEXY XR [Concomitant]
     Active Substance: TOPIRAMATE
  12. XANAX [Concomitant]
     Active Substance: ALPRAZOLAM
  13. TOPAMAX [Concomitant]
     Active Substance: TOPIRAMATE
  14. METOPROLOL TARTRATE. [Concomitant]
     Active Substance: METOPROLOL TARTRATE
  15. METOPROLOL SUCCINATE. [Concomitant]
     Active Substance: METOPROLOL SUCCINATE

REACTIONS (2)
  - Dry eye [Not Recovered/Not Resolved]
  - Therapeutic response decreased [Unknown]
